FAERS Safety Report 5224882-9 (Version None)
Quarter: 2007Q1

REPORT INFORMATION
  Report Type: 
  Country: None (occurrence: None)
  Receive Date: 20070131
  Receipt Date: 20070116
  Transmission Date: 20070707
  Serious: Yes (Other)
  Sender: FDA-Public Use
  Company Number: SEWYE217418JAN07

PATIENT
  Sex: Female

DRUGS (2)
  1. ENBREL [Suspect]
     Indication: RHEUMATOID ARTHRITIS
     Dosage: NOT SPECIFIED
     Route: 058
     Dates: start: 20000322
  2. EPREX [Concomitant]
     Indication: ANAEMIA
     Dosage: NOT SPECIFIED

REACTIONS (4)
  - MYOCARDIAL INFARCTION [None]
  - RENAL FAILURE [None]
  - SEPTIC SHOCK [None]
  - UROSEPSIS [None]
